FAERS Safety Report 8815722 (Version 1)
Quarter: 2012Q4

REPORT INFORMATION
  Report Type: 
  Country: US (occurrence: US)
  Receive Date: 20120928
  Receipt Date: 20120928
  Transmission Date: 20130627
  Serious: Yes (Other)
  Sender: FDA-Public Use
  Company Number: US-ROCHE-1094149

PATIENT
  Sex: Female

DRUGS (2)
  1. HERCEPTIN [Suspect]
     Indication: BREAST CANCER FEMALE
     Dosage: Loading dose 280 mg. (dose 4 mg/kg and 2 mg/kg)
     Route: 065
     Dates: start: 20000221
  2. HERCEPTIN [Suspect]
     Dosage: maintenance dose 140 mg. (dose 4 mg/kg and 2 mg/kg)
     Route: 065

REACTIONS (2)
  - Metastasis [Unknown]
  - Therapeutic response decreased [Unknown]
